FAERS Safety Report 4403597-0 (Version None)
Quarter: 2004Q3

REPORT INFORMATION
  Report Type: 
  Country: None (occurrence: None)
  Receive Date: 20040721
  Receipt Date: 20040712
  Transmission Date: 20050211
  Serious: Yes (Hospitalization)
  Sender: FDA-Public Use
  Company Number: IT-GLAXOSMITHKLINE-B0339664A

PATIENT
  Age: 60 Year
  Sex: Male

DRUGS (3)
  1. GLAZIDIM [Suspect]
     Dosage: 2G PER DAY
     Route: 030
     Dates: start: 20040617, end: 20040622
  2. DIPYRONE [Concomitant]
     Route: 048
  3. NORFLOXACIN [Concomitant]
     Route: 048
     Dates: start: 20040623, end: 20040629

REACTIONS (1)
  - RASH PUSTULAR [None]
